FAERS Safety Report 12710927 (Version 1)
Quarter: 2016Q3

REPORT INFORMATION
  Report Type: Report from Study
  Country: CR (occurrence: CR)
  Receive Date: 20160902
  Receipt Date: 20160902
  Transmission Date: 20161109
  Serious: Yes (Hospitalization)
  Sender: FDA-Public Use
  Company Number: CR-PFIZER INC-2011012313

PATIENT
  Age: 57 Year
  Sex: Male
  Weight: 92 kg

DRUGS (15)
  1. GEMFIBROZIL. [Concomitant]
     Active Substance: GEMFIBROZIL
     Indication: DYSLIPIDAEMIA
     Dosage: 600 MG, 2X/DAY
     Dates: start: 20081017
  2. AMITRIPTYLINE [Concomitant]
     Active Substance: AMITRIPTYLINE
     Indication: ANXIETY
     Dosage: 20 MG, 1X/DAY
     Dates: start: 20080701
  3. DIPHENHYDRAMINE. [Concomitant]
     Active Substance: DIPHENHYDRAMINE
     Indication: ANXIETY
     Dosage: 50 MG, 2X/DAY
     Dates: start: 20080701
  4. BLOPRESS [Concomitant]
     Active Substance: CANDESARTAN CILEXETIL
     Indication: HYPERTENSION
     Dosage: 12.5 MG, 1X/DAY
     Dates: start: 20091024
  5. INSULATARD NPH [Concomitant]
     Indication: DIABETES MELLITUS
     Dosage: 60 IU, 1X/DAY
     Dates: start: 20020101
  6. VERAPAMIL HYDROCHLORIDE. [Concomitant]
     Active Substance: VERAPAMIL HYDROCHLORIDE
     Indication: CORONARY ARTERY DISEASE
     Dosage: 80 MG, 2X/DAY
     Dates: start: 20050101
  7. ZOPLICONE [Concomitant]
     Active Substance: ZOPICLONE
     Indication: ANXIETY
     Dosage: 7.5 MG, 1X/DAY
     Dates: start: 20100318
  8. ACETYLSALICYLIC ACID [Concomitant]
     Active Substance: ASPIRIN
  9. CELECOXIB. [Suspect]
     Active Substance: CELECOXIB
     Indication: ARTHRITIS
     Dosage: UNK
     Route: 048
     Dates: start: 20080920
  10. INSULIN [Concomitant]
     Active Substance: INSULIN NOS
     Indication: DIABETES MELLITUS
     Dosage: UNK
     Dates: start: 20020101
  11. AMLODIPINE BESILATE [Concomitant]
     Active Substance: AMLODIPINE BESYLATE
     Indication: HYPERTENSION
     Dosage: 5 MG, 1X/DAY
     Dates: start: 20040101
  12. ALISKIREN [Concomitant]
     Active Substance: ALISKIREN
     Indication: HYPERTENSION
     Dosage: 150 MG, 1X/DAY
     Dates: start: 20100216
  13. METFORMIN [Concomitant]
     Active Substance: METFORMIN HYDROCHLORIDE
     Indication: DIABETES MELLITUS
     Dosage: 500 MG, 3X/DAY
     Dates: start: 20081017
  14. NEXIUM [Concomitant]
     Active Substance: ESOMEPRAZOLE MAGNESIUM
     Dosage: 20 MG, 1X/DAY
     Route: 048
     Dates: start: 20080920
  15. FLUVOXAMINE [Concomitant]
     Active Substance: FLUVOXAMINE
     Indication: ANXIETY
     Dosage: UNK
     Dates: start: 20100318

REACTIONS (1)
  - Ischaemia [Recovered/Resolved with Sequelae]

NARRATIVE: CASE EVENT DATE: 20100824
